FAERS Safety Report 7901080-9 (Version None)
Quarter: 2011Q4

REPORT INFORMATION
  Report Type: 
  Country: None (occurrence: None)
  Receive Date: 20111108
  Receipt Date: 20111027
  Transmission Date: 20120403
  Serious: Yes (Hospitalization)
  Sender: FDA-Public Use
  Company Number: US-ELI_LILLY_AND_COMPANY-US201111000928

PATIENT
  Sex: Male

DRUGS (1)
  1. CIALIS [Suspect]
     Indication: ERECTILE DYSFUNCTION
     Dosage: UNK

REACTIONS (7)
  - PAIN [None]
  - MUSCLE SPASMS [None]
  - HYPOAESTHESIA [None]
  - PARAESTHESIA [None]
  - BARRETT'S OESOPHAGUS [None]
  - HIP SURGERY [None]
  - INTENTIONAL DRUG MISUSE [None]
